FAERS Safety Report 10342980 (Version 1)
Quarter: 2014Q3

REPORT INFORMATION
  Report Type: Spontaneous
  Country: US (occurrence: US)
  Receive Date: 20140725
  Receipt Date: 20140725
  Transmission Date: 20150326
  Serious: No
  Sender: FDA-Public Use
  Company Number: US-NOVEN-14US009553

PATIENT

DRUGS (1)
  1. BRISDELLE [Suspect]
     Active Substance: PAROXETINE MESYLATE
     Indication: HOT FLUSH
     Dosage: 7.5 MG, UNK
     Route: 048
     Dates: start: 20140410, end: 20140504

REACTIONS (4)
  - Headache [Recovered/Resolved]
  - Restlessness [Not Recovered/Not Resolved]
  - Drug dose omission [Unknown]
  - Somnolence [Recovered/Resolved]

NARRATIVE: CASE EVENT DATE: 20140504
